FAERS Safety Report 7658976-5 (Version None)
Quarter: 2011Q3

REPORT INFORMATION
  Report Type: 
  Country: None (occurrence: None)
  Receive Date: 20110805
  Receipt Date: 20110727
  Transmission Date: 20111222
  Serious: Yes (Hospitalization)
  Sender: FDA-Public Use
  Company Number: RU-ELI_LILLY_AND_COMPANY-RU201108000138

PATIENT
  Sex: Male

DRUGS (6)
  1. CEFTRIAXONE [Concomitant]
     Dosage: UNK
     Dates: start: 20090519, end: 20090523
  2. GEMCITABINE HYDROCHLORIDE [Suspect]
     Indication: NON-SMALL CELL LUNG CANCER
     Dosage: 2052 MG, 2 X PER 3 WEEK
     Route: 042
     Dates: start: 20090330, end: 20090608
  3. BEVACIZUMAB [Suspect]
     Indication: NON-SMALL CELL LUNG CANCER
     Dosage: 495 MG, 1 X PER 3 WEEK
     Route: 042
     Dates: start: 20090330, end: 20090608
  4. CARBOPLATIN [Suspect]
     Indication: NON-SMALL CELL LUNG CANCER
     Dosage: 493 MG, 1 X PER 3 WEEK
     Route: 042
     Dates: start: 20090330, end: 20090608
  5. ONDANSETRON [Concomitant]
     Dosage: UNK
     Dates: start: 20090330, end: 20090520
  6. DEXAMETHASONE [Concomitant]
     Dosage: UNK
     Dates: start: 20090521, end: 20090522

REACTIONS (1)
  - EPISTAXIS [None]
